FAERS Safety Report 18660422 (Version 1)
Quarter: 2020Q4

REPORT INFORMATION
  Report Type: Spontaneous
  Country: US (occurrence: US)
  Receive Date: 20201223
  Receipt Date: 20201223
  Transmission Date: 20210114
  Serious: Yes (Hospitalization)
  Sender: FDA-Public Use
  Company Number: None

PATIENT
  Age: 76 Year
  Sex: Male
  Weight: 113 kg

DRUGS (1)
  1. HYDRALAZINE (HYDRALAZINE HCL 50MG TAB) [Suspect]
     Active Substance: HYDRALAZINE HYDROCHLORIDE
     Indication: HYPERTENSION
     Route: 048
     Dates: start: 20190307, end: 20201008

REACTIONS (8)
  - Renal impairment [None]
  - Anti-neutrophil cytoplasmic antibody positive vasculitis [None]
  - Glomerulonephritis [None]
  - Glomerulonephritis rapidly progressive [None]
  - Thrombocytopenia [None]
  - Acute kidney injury [None]
  - Nephrotic syndrome [None]
  - Anaemia [None]

NARRATIVE: CASE EVENT DATE: 20201008
